FAERS Safety Report 21669451 (Version 1)
Quarter: 2022Q4

REPORT INFORMATION
  Report Type: Report from Study
  Country: US (occurrence: US)
  Receive Date: 20221201
  Receipt Date: 20221201
  Transmission Date: 20230113
  Serious: No
  Sender: FDA-Public Use
  Company Number: US-ABBVIE-4186720

PATIENT
  Sex: Female

DRUGS (1)
  1. RINVOQ [Suspect]
     Active Substance: UPADACITINIB
     Indication: Rheumatoid arthritis
     Dosage: 1 TABLET BY MOUTH EVERY DAY WITH MEALS FOR 90 DAYS. ?FORM STRENGTH 15 MILLIGRAM
     Route: 048
     Dates: start: 20221005

REACTIONS (2)
  - Skin irritation [Unknown]
  - Rheumatoid arthritis [Unknown]
